FAERS Safety Report 10220320 (Version 1)
Quarter: 2014Q2

REPORT INFORMATION
  Report Type: Spontaneous
  Country: GB (occurrence: GB)
  Receive Date: 20140606
  Receipt Date: 20140606
  Transmission Date: 20141212
  Serious: Yes (Life-Threatening, Hospitalization, Other)
  Sender: FDA-Public Use
  Company Number: GB-ACCORD-024047

PATIENT
  Age: 76 Year
  Sex: Female
  Weight: 81 kg

DRUGS (6)
  1. LISINOPRIL [Suspect]
     Indication: PRODUCT USED FOR UNKNOWN INDICATION
     Route: 048
     Dates: end: 20140521
  2. SIMVASTATIN [Concomitant]
  3. HYOSCINE [Concomitant]
  4. COLECALCIFEROL [Concomitant]
     Dates: start: 20140424
  5. ACETYLSALICYLIC ACID [Concomitant]
  6. TRIMETHOPRIM/TRIMETHOPRIM LACTATE/TRIMETHOPRIM SULFATE [Concomitant]
     Indication: URINARY TRACT INFECTION
     Dates: start: 20140411

REACTIONS (4)
  - Anaphylactic reaction [Recovered/Resolved]
  - Obstructive airways disorder [Recovered/Resolved]
  - Angioedema [Unknown]
  - Dyspnoea [Recovered/Resolved]
